FAERS Safety Report 7919058-8 (Version None)
Quarter: 2011Q4

REPORT INFORMATION
  Report Type: 
  Country: None (occurrence: None)
  Receive Date: 20111116
  Receipt Date: 20111107
  Transmission Date: 20120403
  Serious: Yes (Other)
  Sender: FDA-Public Use
  Company Number: US-ASTRAZENECA-2010SE54297

PATIENT
  Age: 70 Year
  Sex: Female
  Weight: 72.6 kg

DRUGS (8)
  1. SEROQUEL [Suspect]
     Route: 048
  2. SEROQUEL [Suspect]
     Route: 048
  3. SEROQUEL [Suspect]
     Route: 048
  4. SEROQUEL [Suspect]
     Route: 048
  5. SEROQUEL [Suspect]
     Route: 048
  6. LAMICTAL [Concomitant]
     Dosage: HS
  7. ULTRAM [Concomitant]
     Indication: ARTHRITIS
  8. SEROQUEL [Suspect]
     Indication: BIPOLAR DISORDER
     Route: 048
     Dates: start: 20000101

REACTIONS (7)
  - BIPOLAR DISORDER [None]
  - DRUG DOSE OMISSION [None]
  - INITIAL INSOMNIA [None]
  - DRUG EFFECT DECREASED [None]
  - MIDDLE INSOMNIA [None]
  - ROAD TRAFFIC ACCIDENT [None]
  - INSOMNIA [None]
